FAERS Safety Report 8388791-9 (Version None)
Quarter: 2012Q2

REPORT INFORMATION
  Report Type: 
  Country: None (occurrence: None)
  Receive Date: 20120528
  Receipt Date: 20120522
  Transmission Date: 20120825
  Serious: Yes (Hospitalization)
  Sender: FDA-Public Use
  Company Number: US-AMGEN-USASP2012032047

PATIENT
  Age: 81 Year
  Sex: Male

DRUGS (2)
  1. ENBREL [Suspect]
     Indication: PSORIASIS
  2. ENBREL [Suspect]
     Indication: PSORIATIC ARTHROPATHY
     Dosage: 50 MG, QWK
     Dates: start: 20030601

REACTIONS (11)
  - TRANSIENT ISCHAEMIC ATTACK [None]
  - WRONG TECHNIQUE IN DRUG USAGE PROCESS [None]
  - NEUROPATHY PERIPHERAL [None]
  - FALL [None]
  - GAIT DISTURBANCE [None]
  - PSORIASIS [None]
  - INJECTION SITE SWELLING [None]
  - JOINT INJURY [None]
  - INJECTION SITE ERYTHEMA [None]
  - CEREBROVASCULAR ACCIDENT [None]
  - MACULAR DEGENERATION [None]
